FAERS Safety Report 10548238 (Version 1)
Quarter: 2014Q4

REPORT INFORMATION
  Report Type: Spontaneous
  Country: US (occurrence: None)
  Receive Date: 20141027
  Receipt Date: 20141027
  Transmission Date: 20150529
  Serious: No
  Sender: FDA-Public Use
  Company Number: None

PATIENT
  Age: 62 Year
  Sex: Male
  Weight: 154.22 kg

DRUGS (1)
  1. MEDROL [Suspect]
     Active Substance: METHYLPREDNISOLONE
     Indication: NECK PAIN
     Dosage: 6  4MG PILLS DAY ONE, TAPERING ?TAPERING DOSE?TAKEN BY MOUTH
     Route: 048
     Dates: start: 20141008, end: 20141013

REACTIONS (2)
  - Insomnia [None]
  - Hiccups [None]

NARRATIVE: CASE EVENT DATE: 20141008
